FAERS Safety Report 8625130-X (Version None)
Quarter: 2012Q3

REPORT INFORMATION
  Report Type: 
  Country: None (occurrence: None)
  Receive Date: 20120827
  Receipt Date: 20120816
  Transmission Date: 20120928
  Serious: Yes (Hospitalization)
  Sender: FDA-Public Use
  Company Number: FR-VIIV HEALTHCARE LIMITED-B0823132A

PATIENT
  Sex: Male

DRUGS (8)
  1. SULFADIAZINE [Suspect]
     Indication: CEREBRAL TOXOPLASMOSIS
     Dosage: 6G PER DAY
     Route: 048
     Dates: start: 20120618, end: 20120709
  2. PREZISTA [Suspect]
     Indication: HIV INFECTION
     Dosage: 400MG TWICE PER DAY
     Route: 048
     Dates: start: 20120627, end: 20120704
  3. MALOCIDE [Concomitant]
     Indication: CEREBRAL TOXOPLASMOSIS
     Route: 065
     Dates: start: 20120618
  4. FLUCONAZOLE [Suspect]
     Indication: OESOPHAGEAL CANDIDIASIS
     Dosage: 100MG PER DAY
     Route: 048
     Dates: start: 20120608, end: 20120630
  5. FOLINATE [Concomitant]
     Dosage: 25MG PER DAY
     Route: 065
     Dates: start: 20120618
  6. COMBIVIR [Suspect]
     Indication: HIV INFECTION
     Dosage: 1TAB TWICE PER DAY
     Route: 048
     Dates: start: 20120627, end: 20120704
  7. BACTRIM [Suspect]
     Indication: ANTIFUNGAL PROPHYLAXIS
     Dosage: 1UNIT PER DAY
     Route: 048
     Dates: start: 20120612, end: 20120705
  8. NORVIR [Suspect]
     Indication: HIV INFECTION
     Dosage: 100MG PER DAY
     Route: 048
     Dates: start: 20120627, end: 20120704

REACTIONS (27)
  - EPIDERMAL NECROSIS [None]
  - CONJUNCTIVITIS [None]
  - EYELID OEDEMA [None]
  - MUCOSAL EROSION [None]
  - TACHYCARDIA [None]
  - FACE OEDEMA [None]
  - SCROTAL OEDEMA [None]
  - OEDEMA GENITAL [None]
  - LYMPHADENOPATHY [None]
  - CHEILITIS [None]
  - N-TERMINAL PROHORMONE BRAIN NATRIURETIC PEPTIDE INCREASED [None]
  - STEVENS-JOHNSON SYNDROME [None]
  - DYSPHAGIA [None]
  - LIP HAEMORRHAGE [None]
  - SKIN EXFOLIATION [None]
  - CARDIAC FAILURE [None]
  - PYREXIA [None]
  - ANAL EROSION [None]
  - ELECTROCARDIOGRAM ABNORMAL [None]
  - RASH MACULO-PAPULAR [None]
  - PENILE ULCERATION [None]
  - TROPONIN INCREASED [None]
  - CYTOMEGALOVIRUS CHORIORETINITIS [None]
  - OPTIC DISC HAEMORRHAGE [None]
  - DRUG RASH WITH EOSINOPHILIA AND SYSTEMIC SYMPTOMS [None]
  - MYOCARDITIS [None]
  - SCAB [None]
